FAERS Safety Report 4459261-5 (Version None)
Quarter: 2004Q3

REPORT INFORMATION
  Report Type: 
  Country: None (occurrence: None)
  Receive Date: 20040922
  Receipt Date: 20040922
  Transmission Date: 20050211
  Serious: Yes (Hospitalization)
  Sender: FDA-Public Use
  Company Number: None

PATIENT
  Age: 57 Year
  Sex: Male
  Weight: 92.6 kg

DRUGS (1)
  1. CISPLATIN [Suspect]
     Indication: TONSIL CANCER
     Dosage: 169 MG INTRAVENOUS
     Route: 042
     Dates: start: 20040922, end: 20041029

REACTIONS (3)
  - PYREXIA [None]
  - SQUAMOUS CELL CARCINOMA [None]
  - SUPERINFECTION [None]
